FAERS Safety Report 15973873 (Version 1)
Quarter: 2019Q1

REPORT INFORMATION
  Report Type: Spontaneous
  Country: DE (occurrence: DE)
  Receive Date: 20190217
  Receipt Date: 20190217
  Transmission Date: 20190418
  Serious: Yes (Hospitalization, Other)
  Sender: FDA-Public Use
  Company Number: PHHY2019DE033405

PATIENT
  Age: 59 Year
  Sex: Female

DRUGS (2)
  1. ESTRADIOL. [Suspect]
     Active Substance: ESTRADIOL
     Indication: HORMONE REPLACEMENT THERAPY
     Dosage: 1 DF, QD
     Route: 062
  2. PROGESTERONE. [Suspect]
     Active Substance: PROGESTERONE
     Indication: PREVENTION OF ENDOMETRIAL HYPERPLASIA
     Dosage: 1 DF, QD
     Route: 048

REACTIONS (3)
  - Pulmonary embolism [Recovering/Resolving]
  - Diverticular perforation [Recovered/Resolved]
  - Pelvic venous thrombosis [Recovering/Resolving]

NARRATIVE: CASE EVENT DATE: 201805
